FAERS Safety Report 6896710-7 (Version None)
Quarter: 2010Q3

REPORT INFORMATION
  Report Type: 
  Country: None (occurrence: None)
  Receive Date: 20100802
  Receipt Date: 20070130
  Transmission Date: 20110219
  Serious: No
  Sender: FDA-Public Use
  Company Number: US-PFIZER INC-2007008758

PATIENT
  Sex: Male
  Weight: 74.84 kg

DRUGS (4)
  1. LYRICA [Suspect]
     Indication: DIABETIC NEUROPATHY
     Dates: start: 20070129
  2. ALL OTHER THERAPEUTIC PRODUCTS [Concomitant]
     Indication: DIABETES MELLITUS
  3. ZOCOR [Concomitant]
  4. ANTIHYPERTENSIVES [Concomitant]

REACTIONS (1)
  - CONSTIPATION [None]
